FAERS Safety Report 7122035-0 (Version None)
Quarter: 2010Q4

REPORT INFORMATION
  Report Type: 
  Country: None (occurrence: None)
  Receive Date: 20101124
  Receipt Date: 20101117
  Transmission Date: 20110411
  Serious: Yes (Life-Threatening, Hospitalization)
  Sender: FDA-Public Use
  Company Number: B0565460A

PATIENT
  Age: 67 Year
  Sex: Male

DRUGS (12)
  1. QUERTO [Suspect]
     Dosage: 25MG PER DAY
     Route: 048
  2. HUMAN ACTRAPID [Suspect]
     Route: 058
  3. ISOPHANE INSULIN [Suspect]
     Dosage: 24IU PER DAY
     Route: 058
  4. AMLODIPINE BESYLATE [Concomitant]
  5. VALSARTAN [Concomitant]
  6. ARELIX [Concomitant]
  7. LACTULOSE [Concomitant]
     Dates: start: 20080201
  8. MICTONORM [Concomitant]
     Dates: start: 20080101
  9. NEURONTIN [Concomitant]
  10. PANTOPRAZOLE SODIUM [Concomitant]
  11. RANITIC [Concomitant]
     Dates: start: 20080319
  12. TRAMAGIT [Concomitant]
     Dates: start: 20080301

REACTIONS (1)
  - HYPOGLYCAEMIA [None]
